FAERS Safety Report 9104049 (Version 1)
Quarter: 2013Q1

REPORT INFORMATION
  Report Type: Spontaneous
  Country: GB (occurrence: GB)
  Receive Date: 20130219
  Receipt Date: 20130219
  Transmission Date: 20140127
  Serious: Yes (Other)
  Sender: FDA-Public Use
  Company Number: GB-SANOFI-AVENTIS-2013SA013625

PATIENT
  Age: 57 Year
  Sex: Female
  Weight: 80 kg

DRUGS (2)
  1. LANSOPRAZOLE [Suspect]
     Indication: OESOPHAGEAL ULCER
     Dosage: DOSE: 30 UNITS NOT SPECIFIED
     Route: 065
     Dates: start: 20120501, end: 20121218
  2. CLEXANE [Suspect]
     Indication: PULMONARY EMBOLISM
     Dosage: DOSE: 120 UNITS NOT SPECIFIED
     Route: 065
     Dates: start: 20120502, end: 20121128

REACTIONS (2)
  - Alopecia [Not Recovered/Not Resolved]
  - Pruritus [Not Recovered/Not Resolved]
